FAERS Safety Report 23151263 (Version 1)
Quarter: 2023Q4

REPORT INFORMATION
  Report Type: Spontaneous
  Country: IT (occurrence: IT)
  Receive Date: 20231106
  Receipt Date: 20231106
  Transmission Date: 20240110
  Serious: Yes (Hospitalization, Other)
  Sender: FDA-Public Use
  Company Number: None

PATIENT
  Age: 79 Year
  Sex: Male

DRUGS (6)
  1. AVIBACTAM SODIUM\CEFTAZIDIME [Suspect]
     Active Substance: AVIBACTAM SODIUM\CEFTAZIDIME
     Indication: Pneumonitis
     Dosage: 2 G, 1X/DAY FIRST DOSE LATENCY:4 DAYS
     Route: 042
     Dates: start: 20200127
  2. COLISTIMETHATE SODIUM [Suspect]
     Active Substance: COLISTIMETHATE SODIUM
     Indication: Infection
     Dosage: 9000000 MIU, 1X/DAY  FIRST DOSE LATENCY:4 DAYS
     Route: 042
     Dates: start: 20200127
  3. INDOMETHACIN [Suspect]
     Active Substance: INDOMETHACIN
     Indication: Inflammation
     Dosage: 2 DF, 1X/DAY  FIRST DOSE LATENCY:4 DAYS
     Route: 048
     Dates: start: 20200127
  4. LEVOTHYROXINE SODIUM [Concomitant]
     Active Substance: LEVOTHYROXINE SODIUM
     Indication: Product used for unknown indication
  5. TRAZODONE HYDROCHLORIDE [Concomitant]
     Active Substance: TRAZODONE HYDROCHLORIDE
     Indication: Product used for unknown indication
  6. NORVASC [Concomitant]
     Active Substance: AMLODIPINE BESYLATE
     Indication: Product used for unknown indication

REACTIONS (1)
  - Renal failure [Recovering/Resolving]

NARRATIVE: CASE EVENT DATE: 20200130
